FAERS Safety Report 8543544-3 (Version None)
Quarter: 2012Q3

REPORT INFORMATION
  Report Type: 
  Country: None (occurrence: None)
  Receive Date: 20120727
  Receipt Date: 20120725
  Transmission Date: 20120928
  Serious: Yes (Other)
  Sender: FDA-Public Use
  Company Number: PHFR2012GB003025

PATIENT
  Sex: Female

DRUGS (2)
  1. TEGRETOL [Suspect]
     Indication: NEURALGIA
     Dosage: 100 MG (2 IN MORNINGS, 2 AT TEATIME AND 3 AT BEDTIME)
     Dates: start: 20100201
  2. ACETAMINOPHEN AND CODEINE PHOSPHATE [Concomitant]
     Indication: PAIN
     Route: 048

REACTIONS (7)
  - AGE-RELATED MACULAR DEGENERATION [None]
  - TINNITUS [None]
  - RASH [None]
  - JOINT SWELLING [None]
  - TREMOR [None]
  - LOSS OF LIBIDO [None]
  - SWELLING FACE [None]
